FAERS Safety Report 7460868-1 (Version None)
Quarter: 2011Q2

REPORT INFORMATION
  Report Type: 
  Country: None (occurrence: None)
  Receive Date: 20110505
  Receipt Date: 20110128
  Transmission Date: 20111010
  Serious: Yes (Hospitalization, Other)
  Sender: FDA-Public Use
  Company Number: IE-AMGEN-UK366217

PATIENT
  Age: 32 Year
  Sex: Female
  Weight: 84.4 kg

DRUGS (18)
  1. ARANESP [Suspect]
     Dosage: 150 UNK, QWK
     Route: 058
     Dates: start: 20050514, end: 20061019
  2. ARANESP [Suspect]
     Dosage: 150 UNK, QWK
     Route: 058
     Dates: start: 20070502, end: 20070919
  3. CALCIUM CARBONATE [Concomitant]
     Dosage: 500 MG, UNK
     Route: 065
  4. FOLIC ACID [Concomitant]
     Dosage: 5 MG, QD
     Route: 065
  5. ARANESP [Suspect]
     Dosage: 200 UNK, QWK
     Route: 058
     Dates: start: 20061009, end: 20070502
  6. LANTHANUM CARBONATE [Concomitant]
     Dosage: 1 G, UNK
     Route: 065
  7. CINACALCET HYDROCHLORIDE [Concomitant]
     Dosage: 180 MG, QD
     Route: 065
  8. ALFACALCIDOL [Concomitant]
     Dosage: 1 A?G, QD
     Route: 065
  9. FERROUS FUMARATE [Concomitant]
     Dosage: UNK UNK, QD
     Route: 065
  10. NIFEDIPINE [Concomitant]
     Dosage: 40 MG, BID
     Route: 065
  11. BEMINAL WITH C FORTIS [Concomitant]
     Dosage: UNK UNK, QD
     Route: 065
  12. ARANESP [Suspect]
     Indication: ANAEMIA
     Dosage: 100 UNK, QWK
     Route: 058
     Dates: start: 20050518, end: 20050714
  13. ARANESP [Suspect]
     Dosage: 200 UNK, QWK
     Route: 058
     Dates: start: 20070919
  14. MINOXIDIL [Concomitant]
     Dosage: 10 MG, QD
     Route: 065
  15. METOPROLOL SUCCINATE [Concomitant]
     Dosage: 100 MG, BID
     Route: 065
  16. SEVELAMER [Concomitant]
     Dosage: 800 MG, UNK
     Route: 065
  17. DOXAZOSIN MESYLATE [Concomitant]
     Dosage: 8 MG, BID
     Route: 065
  18. ORLISTAT [Concomitant]
     Dosage: 120 MG, TID
     Route: 065

REACTIONS (9)
  - ANAEMIA OF CHRONIC DISEASE [None]
  - LETHARGY [None]
  - HYPOTENSION [None]
  - HYPERPARATHYROIDISM [None]
  - BLOOD PARATHYROID HORMONE INCREASED [None]
  - THERAPEUTIC RESPONSE DECREASED [None]
  - VOMITING [None]
  - HYPERTENSION [None]
  - NAUSEA [None]
